FAERS Safety Report 8094409-5 (Version None)
Quarter: 2012Q1

REPORT INFORMATION
  Report Type: 
  Country: None (occurrence: None)
  Receive Date: 20120130
  Receipt Date: 20120117
  Transmission Date: 20120608
  Serious: Yes (Other)
  Sender: FDA-Public Use
  Company Number: KR-SANOFI-AVENTIS-2012SA003398

PATIENT
  Sex: Female
  Weight: 42 kg

DRUGS (8)
  1. LANTUS [Suspect]
     Route: 058
  2. LANTUS [Suspect]
     Indication: DIABETES MELLITUS
     Dosage: DOSE:49 UNIT(S)
     Route: 058
     Dates: start: 20111104
  3. APIDRA [Suspect]
     Dosage: DOSE: 11-22-11
     Route: 058
  4. LANTUS [Suspect]
     Dosage: DOSE:49 UNIT(S)
     Route: 058
     Dates: start: 20120111, end: 20120111
  5. LANTUS [Suspect]
     Dosage: DOSE:45 UNIT(S)
     Route: 058
     Dates: start: 20120112
  6. APIDRA [Suspect]
     Indication: DIABETES MELLITUS
     Dosage: DOSE:11 UNIT(S)
     Route: 058
     Dates: start: 20111104
  7. APIDRA [Suspect]
     Dosage: DOSE: 11-22-11 DOSE:10 UNIT(S)
     Route: 058
     Dates: start: 20120112
  8. APIDRA [Suspect]
     Dosage: DOSE: 11-22-11
     Route: 058
     Dates: start: 20120111, end: 20120111

REACTIONS (7)
  - ASTHENIA [None]
  - HYPOGLYCAEMIA [None]
  - HALLUCINATION [None]
  - OVERDOSE [None]
  - DELIRIUM [None]
  - DRUG ADMINISTRATION ERROR [None]
  - HYPOGLYCAEMIC UNCONSCIOUSNESS [None]
